FAERS Safety Report 4973262-X (Version None)
Quarter: 2006Q2

REPORT INFORMATION
  Report Type: 
  Country: None (occurrence: None)
  Receive Date: 20060414
  Receipt Date: 20010117
  Transmission Date: 20061013
  Serious: Yes (Hospitalization)
  Sender: FDA-Public Use
  Company Number: DE-ABBOTT-01P-062-0175526-00

PATIENT
  Sex: Female
  Weight: 53 kg

DRUGS (9)
  1. HUMIRA [Suspect]
     Indication: RHEUMATOID ARTHRITIS
     Route: 058
     Dates: start: 20001019, end: 20010111
  2. HUMIRA [Suspect]
     Route: 058
     Dates: start: 20010222, end: 20010405
  3. DECORTIN [Concomitant]
     Indication: RHEUMATOID ARTHRITIS
     Route: 048
     Dates: start: 20001229, end: 20010126
  4. QUERTO [Concomitant]
     Indication: HYPERTENSION
     Route: 048
     Dates: start: 20001019, end: 20010126
  5. CALCIUM GLUCONATE [Concomitant]
     Indication: PROPHYLAXIS
     Route: 048
     Dates: start: 19980101, end: 20010126
  6. VIGANTOLETTEN [Concomitant]
     Indication: PROPHYLAXIS
     Route: 048
     Dates: start: 19980101, end: 20010126
  7. PANTOZOL [Concomitant]
     Indication: PROPHYLAXIS AGAINST GASTROINTESTINAL ULCER
     Route: 048
     Dates: start: 20000314, end: 20010118
  8. DICLOFENAC SODIUM [Concomitant]
     Indication: RHEUMATOID ARTHRITIS
     Route: 048
     Dates: start: 20000314, end: 20060126
  9. XALATAN [Concomitant]
     Indication: GLAUCOMA
     Route: 047
     Dates: start: 19990101

REACTIONS (1)
  - DIVERTICULAR PERFORATION [None]
